FAERS Safety Report 20614124 (Version 3)
Quarter: 2022Q2

REPORT INFORMATION
  Report Type: Report from Study
  Country: GB (occurrence: GB)
  Receive Date: 20220320
  Receipt Date: 20220619
  Transmission Date: 20220721
  Serious: Yes (Death, Hospitalization, Other)
  Sender: FDA-Public Use
  Company Number: GB-JNJFOC-20220323444

PATIENT
  Age: 72 Year
  Sex: Male

DRUGS (1)
  1. STELARA [Suspect]
     Active Substance: USTEKINUMAB
     Indication: Crohn^s disease
     Route: 041

REACTIONS (4)
  - Rectal perforation [Fatal]
  - Crohn^s disease [Fatal]
  - Infusion related reaction [Unknown]
  - Pain [Unknown]

NARRATIVE: CASE EVENT DATE: 20220515
